FAERS Safety Report 11119834 (Version 1)
Quarter: 2015Q2

REPORT INFORMATION
  Report Type: Spontaneous
  Country: DE (occurrence: DE)
  Receive Date: 20150518
  Receipt Date: 20150518
  Transmission Date: 20150821
  Serious: Yes (Hospitalization, Other)
  Sender: FDA-Public Use
  Company Number: DE-TEVA-563064GER

PATIENT
  Sex: Female

DRUGS (1)
  1. COPAXONE [Suspect]
     Active Substance: GLATIRAMER ACETATE
     Dates: start: 1999

REACTIONS (3)
  - Multiple sclerosis relapse [Unknown]
  - Gait disturbance [Unknown]
  - Disability [Unknown]

NARRATIVE: CASE EVENT DATE: 20150430
